FAERS Safety Report 8837766 (Version 2)
Quarter: 2012Q4

REPORT INFORMATION
  Report Type: 
  Country: GB (occurrence: US)
  Receive Date: 20121012
  Receipt Date: 20121109
  Transmission Date: 20130627
  Serious: Yes (Hospitalization)
  Sender: FDA-Public Use
  Company Number: US-MERCK-1210USA004842

PATIENT
  Age: 77 Year
  Sex: Female
  Weight: 57.5 kg

DRUGS (33)
  1. CANCIDAS [Suspect]
     Indication: NEOPLASM MALIGNANT
     Dosage: UNK
     Route: 042
     Dates: start: 20120831, end: 20120907
  2. VEMURAFENIB [Suspect]
     Indication: NEOPLASM MALIGNANT
     Dosage: 960 mg, bid
     Route: 048
     Dates: start: 20120828, end: 20120927
  3. ZOSYN [Suspect]
     Indication: NEOPLASM MALIGNANT
     Dosage: 2.25 g, UNK
     Route: 042
     Dates: start: 20120908, end: 20120912
  4. AMPHOTERICIN B [Suspect]
     Indication: NEOPLASM MALIGNANT
     Dosage: UNK
     Route: 042
     Dates: start: 20120831, end: 20120907
  5. AMLODIPINE [Concomitant]
     Dosage: UNK
     Dates: start: 20120911
  6. LOPERAMIDE HYDROCHLORIDE [Concomitant]
     Dosage: UNK
     Dates: start: 20120910
  7. LOPERAMIDE HYDROCHLORIDE [Concomitant]
     Dosage: UNK
     Dates: start: 20120820, end: 20120824
  8. ENOXAPARIN SODIUM [Concomitant]
     Dosage: UNK
     Dates: start: 20120908
  9. SPIRONOLACTONE [Concomitant]
     Dosage: UNK
     Dates: start: 20120908
  10. HYDRALAZINE HYDROCHLORIDE [Concomitant]
     Dosage: UNK
     Dates: start: 20120904, end: 20120912
  11. LEVOTHYROXINE SODIUM [Concomitant]
     Dosage: UNK
     Dates: start: 20120901
  12. LEVOTHYROXINE SODIUM [Concomitant]
     Dosage: UNK
     Dates: start: 20120901
  13. LEVOTHYROXINE SODIUM [Concomitant]
     Dosage: UNK
     Dates: start: 199002
  14. ONDANSETRON [Concomitant]
     Dosage: UNK
     Dates: start: 20120831
  15. METOPROLOL TARTRATE [Concomitant]
     Dosage: UNK
     Dates: start: 20120906
  16. PROCHLORPERAZINE [Concomitant]
     Dosage: UNK
     Dates: start: 20120831
  17. PROCHLORPERAZINE [Concomitant]
     Dosage: UNK
     Dates: start: 20120814
  18. PROTONIX [Concomitant]
     Dosage: UNK
     Dates: start: 20120901, end: 20120912
  19. PROTONIX [Concomitant]
     Dosage: UNK
     Dates: start: 20120831
  20. PROTONIX [Concomitant]
     Dosage: UNK
     Dates: start: 20120823
  21. MAGNESIUM SULFATE [Concomitant]
     Dosage: UNK
     Dates: start: 20120911, end: 20120911
  22. FLUOCINONIDE [Concomitant]
     Dosage: 1 app
     Dates: start: 20120827, end: 20120905
  23. ZOFRAN [Concomitant]
     Dosage: UNK
     Dates: start: 20120814
  24. MUPIROCIN [Concomitant]
     Dosage: 1 app
     Dates: start: 20120827, end: 20120915
  25. ACETAMINOPHEN [Concomitant]
     Dosage: UNK
     Dates: start: 20120820, end: 20120824
  26. CHOLECALCIFEROL [Concomitant]
     Dosage: UNK
     Dates: start: 20120326
  27. SENNOSIDES [Concomitant]
     Dosage: UNK
     Dates: start: 20120720
  28. ATENOLOL [Concomitant]
     Dosage: UNK
     Dates: start: 2008, end: 20120927
  29. MELOXICAM [Concomitant]
     Dosage: UNK
     Dates: start: 2009, end: 20120927
  30. NORCO [Concomitant]
     Dosage: 10/325 mg, daily
     Dates: start: 20120720
  31. CYANOCOBALAMIN [Concomitant]
     Dosage: UNK
     Dates: start: 20120326
  32. ASPIRIN [Suspect]
     Dosage: 81 mg, UNK
     Dates: start: 20120831
  33. ASPIRIN [Suspect]
     Dosage: 81 mg, UNK
     Dates: start: 2010

REACTIONS (1)
  - Gastrointestinal fungal infection [Recovered/Resolved]
